FAERS Safety Report 22520641 (Version 1)
Quarter: 2023Q2

REPORT INFORMATION
  Report Type: Spontaneous
  Country: CN (occurrence: CN)
  Receive Date: 20230605
  Receipt Date: 20230605
  Transmission Date: 20230721
  Serious: Yes (Life-Threatening)
  Sender: FDA-Public Use
  Company Number: CN-Merck Healthcare KGaA-9405252

PATIENT
  Age: 62 Year
  Sex: Female

DRUGS (5)
  1. ERBITUX [Suspect]
     Active Substance: CETUXIMAB
     Indication: Colon cancer recurrent
     Dosage: 700 MG, UNK
     Route: 041
     Dates: start: 20230425, end: 20230425
  2. FLUOROURACIL [Suspect]
     Active Substance: FLUOROURACIL
     Indication: Colon cancer recurrent
     Dosage: 3.36 G, DAILY
     Route: 041
     Dates: start: 20230425, end: 20230425
  3. FLUOROURACIL [Suspect]
     Active Substance: FLUOROURACIL
     Dosage: 0.56 G, DAILY
     Route: 041
     Dates: start: 20230425, end: 20230425
  4. IRINOTECAN [Suspect]
     Active Substance: IRINOTECAN
     Indication: Colon cancer recurrent
     Dosage: 0.25 G, DAILY
     Route: 041
     Dates: start: 20230425, end: 20230425
  5. LEVOLEUCOVORIN CALCIUM [Concomitant]
     Active Substance: LEVOLEUCOVORIN CALCIUM
     Indication: Colon cancer recurrent
     Dosage: 280 MG, UNKNOWN

REACTIONS (1)
  - Myelosuppression [Recovering/Resolving]

NARRATIVE: CASE EVENT DATE: 20230509
